FAERS Safety Report 19708000 (Version 9)
Quarter: 2022Q4

REPORT INFORMATION
  Report Type: Report from Study
  Country: CA (occurrence: CA)
  Receive Date: 20210817
  Receipt Date: 20221010
  Transmission Date: 20230112
  Serious: Yes (Other)
  Sender: FDA-Public Use
  Company Number: PHHY2011CA64541

PATIENT
  Age: 31 Year
  Sex: Female

DRUGS (19)
  1. SANDOSTATIN LAR DEPOT [Suspect]
     Active Substance: OCTREOTIDE ACETATE
     Indication: Acromegaly
     Dosage: 30 MG, Q4W
     Route: 030
     Dates: start: 20020920, end: 20090129
  2. SANDOSTATIN LAR DEPOT [Suspect]
     Active Substance: OCTREOTIDE ACETATE
     Dosage: 30 MG, Q4W
     Route: 030
     Dates: start: 20100204
  3. SANDOSTATIN LAR DEPOT [Suspect]
     Active Substance: OCTREOTIDE ACETATE
     Dosage: 30 MG, TIW
     Route: 030
     Dates: start: 20130218
  4. SANDOSTATIN LAR DEPOT [Suspect]
     Active Substance: OCTREOTIDE ACETATE
     Dosage: 20 MG, TIW
     Route: 030
  5. SANDOSTATIN LAR DEPOT [Suspect]
     Active Substance: OCTREOTIDE ACETATE
     Dosage: 30 MG, TIW
     Route: 030
  6. SANDOSTATIN [Suspect]
     Active Substance: OCTREOTIDE ACETATE
     Indication: Acromegaly
     Dosage: UNK
     Route: 058
  7. SANDOSTATIN [Suspect]
     Active Substance: OCTREOTIDE ACETATE
     Dosage: UNK UNK, 6QD
     Route: 058
  8. SANDOSTATIN [Suspect]
     Active Substance: OCTREOTIDE ACETATE
     Dosage: UNK UKN, RECEIVED ONLY 1/4
     Route: 058
  9. SANDOSTATIN [Suspect]
     Active Substance: OCTREOTIDE ACETATE
     Dosage: 50 MG, Q4H
     Route: 058
  10. SANDOSTATIN [Suspect]
     Active Substance: OCTREOTIDE ACETATE
     Dosage: UNK
     Route: 065
     Dates: start: 2020
  11. SANDOSTATIN [Suspect]
     Active Substance: OCTREOTIDE ACETATE
     Dosage: 30 MG, Q4W
     Route: 030
     Dates: start: 20020920
  12. NAPROXEN [Concomitant]
     Active Substance: NAPROXEN
     Indication: Product used for unknown indication
     Dosage: 500 MG, BID
     Route: 065
  13. VITAMIN D [Concomitant]
     Active Substance: VITAMIN D NOS
     Indication: Product used for unknown indication
     Dosage: UNK
     Route: 065
  14. IRON [Concomitant]
     Active Substance: IRON
     Indication: Product used for unknown indication
     Route: 048
  15. SENOKOT [Concomitant]
     Active Substance: SENNOSIDES
     Indication: Product used for unknown indication
     Dosage: UNK
     Route: 048
  16. PEGVISOMANT [Concomitant]
     Active Substance: PEGVISOMANT
     Indication: Product used for unknown indication
     Dosage: 20 MG, QD
     Route: 058
  17. PEGVISOMANT [Concomitant]
     Active Substance: PEGVISOMANT
     Dosage: UNK UNK, QD (QPM)
     Route: 058
  18. TYLENOL [Concomitant]
     Active Substance: ACETAMINOPHEN
     Indication: Product used for unknown indication
     Dosage: UNK UNK, PRN
     Route: 065
  19. SOMAVERT [Concomitant]
     Active Substance: PEGVISOMANT
     Indication: Product used for unknown indication
     Dosage: UNK
     Route: 065

REACTIONS (41)
  - Nephrolithiasis [Unknown]
  - Polymenorrhoea [Unknown]
  - Headache [Unknown]
  - Hot flush [Unknown]
  - Blood iron decreased [Unknown]
  - Pain in extremity [Unknown]
  - Neck pain [Unknown]
  - Menstruation delayed [Recovering/Resolving]
  - Palpitations [Unknown]
  - Blood pressure decreased [Unknown]
  - Heavy menstrual bleeding [Recovering/Resolving]
  - Paraesthesia [Unknown]
  - Hypoaesthesia [Recovered/Resolved]
  - Vitamin D decreased [Unknown]
  - Amenorrhoea [Unknown]
  - Blood pressure systolic increased [Unknown]
  - Polyp [Recovered/Resolved]
  - Head discomfort [Unknown]
  - Blood pressure increased [Unknown]
  - Musculoskeletal chest pain [Unknown]
  - Chest pain [Unknown]
  - Fall [Recovering/Resolving]
  - Scar [Recovering/Resolving]
  - Scar pain [Unknown]
  - Blood growth hormone increased [Unknown]
  - Insulin-like growth factor increased [Unknown]
  - Underdose [Unknown]
  - Device difficult to use [Unknown]
  - Nausea [Unknown]
  - Diarrhoea [Unknown]
  - Heart rate decreased [Unknown]
  - Arthralgia [Unknown]
  - Asthenia [Unknown]
  - Abdominal discomfort [Unknown]
  - Dizziness [Unknown]
  - Abdominal pain [Unknown]
  - Injection site pain [Unknown]
  - Needle issue [Unknown]
  - Product quality issue [Unknown]
  - Inappropriate schedule of product administration [Unknown]
  - Drug ineffective [Unknown]

NARRATIVE: CASE EVENT DATE: 20020920
